FAERS Safety Report 13156799 (Version 1)
Quarter: 2017Q1

REPORT INFORMATION
  Report Type: Spontaneous
  Country: FR (occurrence: FR)
  Receive Date: 20170126
  Receipt Date: 20170126
  Transmission Date: 20170428
  Serious: Yes (Hospitalization)
  Sender: FDA-Public Use
  Company Number: FR-ROCHE-1884607

PATIENT
  Age: 71 Year
  Sex: Female

DRUGS (8)
  1. HALDOL [Concomitant]
     Active Substance: HALOPERIDOL
     Dosage: LONG-TERM TREATMENT
     Route: 048
  2. AKINETON [Concomitant]
     Active Substance: BIPERIDEN HYDROCHLORIDE
     Dosage: LONG-TERM TREATMENT
     Route: 048
  3. PAROXETINE. [Concomitant]
     Active Substance: PAROXETINE
     Dosage: LONG-TERM TREATMENT
     Route: 048
  4. KARDEGIC [Concomitant]
     Active Substance: ASPIRIN LYSINE
     Dosage: LONG-TERM TREATMENT
     Route: 048
  5. ATENOLOL. [Concomitant]
     Active Substance: ATENOLOL
     Dosage: LONG-TERM TREATMENT
     Route: 048
  6. SERESTA [Concomitant]
     Active Substance: OXAZEPAM
     Dosage: LONG-TERM TREATMENT
     Route: 047
  7. ROCEPHINE [Suspect]
     Active Substance: CEFTRIAXONE SODIUM
     Indication: HYPERTHERMIA
     Route: 042
     Dates: start: 201608, end: 20160818
  8. NOCTAMIDE [Concomitant]
     Active Substance: LORMETAZEPAM
     Dosage: LONG-TERM TREATMENT
     Route: 048

REACTIONS (4)
  - Confusional state [Recovered/Resolved]
  - Abnormal behaviour [Recovered/Resolved]
  - Dysarthria [Recovered/Resolved]
  - Dyskinesia [Recovered/Resolved]

NARRATIVE: CASE EVENT DATE: 20160817
